FAERS Safety Report 23885777 (Version 1)
Quarter: 2024Q2

REPORT INFORMATION
  Report Type: Other
  Country: AU (occurrence: AU)
  Receive Date: 20240522
  Receipt Date: 20240522
  Transmission Date: 20240716
  Serious: Yes (Hospitalization)
  Sender: FDA-Public Use
  Company Number: AU-B.Braun Medical Inc.-2157315

PATIENT
  Sex: Female

DRUGS (4)
  1. METRONIDAZOLE [Suspect]
     Active Substance: METRONIDAZOLE
     Indication: Clostridium test positive
  2. VANCOMYCIN [Suspect]
     Active Substance: VANCOMYCIN
  3. AMOXICILLIN\CLAVULANATE POTASSIUM [Concomitant]
     Active Substance: AMOXICILLIN\CLAVULANATE POTASSIUM
  4. DICLOXACILLIN [Concomitant]
     Active Substance: DICLOXACILLIN

REACTIONS (1)
  - Drug ineffective [Recovered/Resolved]
